FAERS Safety Report 9196630 (Version 2)
Quarter: 2013Q2

REPORT INFORMATION
  Report Type: Spontaneous
  Country: US (occurrence: US)
  Receive Date: 20130328
  Receipt Date: 20130401
  Transmission Date: 20140414
  Serious: Yes (Other)
  Sender: FDA-Public Use
  Company Number: US-JNJFOC-20130315258

PATIENT
  Age: 20 Year
  Sex: Male
  Weight: 72.58 kg

DRUGS (2)
  1. ROGAINE FOR MEN EXTRA STRENGTH FOAM UNSCENTED [Suspect]
     Route: 061
  2. ROGAINE FOR MEN EXTRA STRENGTH FOAM UNSCENTED [Suspect]
     Indication: ALOPECIA
     Dosage: SMALL DAB TWICE
     Route: 061
     Dates: start: 20130320, end: 20130321

REACTIONS (4)
  - Cardiac flutter [Recovered/Resolved]
  - Application site pruritus [Recovered/Resolved]
  - Application site irritation [Recovered/Resolved]
  - Alopecia [Unknown]
